FAERS Safety Report 16470895 (Version 1)
Quarter: 2019Q2

REPORT INFORMATION
  Report Type: Spontaneous
  Country: US (occurrence: US)
  Receive Date: 20190514
  Receipt Date: 20190514
  Transmission Date: 20190711
  Serious: Yes (Life-Threatening, Other)
  Sender: FDA-Public Use
  Company Number: None

PATIENT
  Age: 24 Year
  Weight: 50.8 kg

DRUGS (1)
  1. CLARITIN REDITABS [Suspect]
     Active Substance: LORATADINE
     Indication: SEASONAL ALLERGY
     Route: 048
     Dates: start: 20190410, end: 20190414

REACTIONS (4)
  - Cardiac disorder [None]
  - Respiratory arrest [None]
  - Epilepsy [None]
  - Product use complaint [None]

NARRATIVE: CASE EVENT DATE: 20190410
